FAERS Safety Report 9645016 (Version 2)
Quarter: 2013Q4

REPORT INFORMATION
  Report Type: Spontaneous
  Country: FR (occurrence: FR)
  Receive Date: 20131025
  Receipt Date: 20131223
  Transmission Date: 20140711
  Serious: Yes (Hospitalization)
  Sender: FDA-Public Use
  Company Number: FR-NOVOPROD-390485

PATIENT
  Age: 25 Year
  Sex: Female

DRUGS (8)
  1. NOVOSEVEN [Suspect]
     Indication: POSTPARTUM HAEMORRHAGE
     Dosage: UNK
     Route: 065
     Dates: start: 20130323
  2. OXYTOCIN [Suspect]
     Indication: PRODUCT USED FOR UNKNOWN INDICATION
     Dosage: UNK
     Route: 065
     Dates: start: 20130323
  3. EXACYL [Suspect]
     Indication: PRODUCT USED FOR UNKNOWN INDICATION
     Dosage: UNK
     Route: 065
     Dates: start: 20130323
  4. FIBRINOGEN [Suspect]
     Indication: PRODUCT USED FOR UNKNOWN INDICATION
     Dosage: 9 G, QD
     Route: 065
  5. NALADOR [Suspect]
     Indication: PRODUCT USED FOR UNKNOWN INDICATION
     Dosage: UNK
     Route: 065
  6. DIPRIVAN [Suspect]
     Indication: PRODUCT USED FOR UNKNOWN INDICATION
     Dosage: UNK (50 MG/HOUR)
     Route: 065
  7. SUFENTANIL [Suspect]
     Indication: PRODUCT USED FOR UNKNOWN INDICATION
     Dosage: UNK (30 UG/HOUR)
     Route: 065
     Dates: start: 20130323
  8. EUPRESSYL                          /00631801/ [Concomitant]
     Dosage: UNK
     Route: 065

REACTIONS (10)
  - Renal failure acute [Recovered/Resolved]
  - Metabolic acidosis [None]
  - Dialysis [None]
  - Anaemia [None]
  - Thrombocytopenia [None]
  - Cholestasis [None]
  - Tachycardia [None]
  - Hypertension [None]
  - Hepatocellular injury [None]
  - Meningioma [None]
